FAERS Safety Report 8977737 (Version 1)
Quarter: 2012Q4

REPORT INFORMATION
  Report Type: 
  Country: US (occurrence: US)
  Receive Date: 20121219
  Receipt Date: 20121219
  Transmission Date: 20130627
  Serious: No
  Sender: FDA-Public Use
  Company Number: US-ASTRAZENECA-2012SE91623

PATIENT
  Age: 54 Year
  Sex: Female
  Weight: 62.1 kg

DRUGS (6)
  1. ARIMIDEX [Suspect]
     Indication: BREAST CANCER FEMALE
     Route: 048
     Dates: start: 200810
  2. CALCIUM [Concomitant]
  3. LATUDA [Concomitant]
     Indication: ANXIETY
  4. SYNTHROID [Concomitant]
     Indication: THYROID DISORDER
  5. VIT D [Concomitant]
  6. WELLBUTRIN [Concomitant]
     Indication: DEPRESSION

REACTIONS (1)
  - Tumour marker increased [Unknown]
